FAERS Safety Report 7290835-2 (Version None)
Quarter: 2011Q1

REPORT INFORMATION
  Report Type: 
  Country: None (occurrence: None)
  Receive Date: 20110214
  Receipt Date: 20110209
  Transmission Date: 20110831
  Serious: Yes (Life-Threatening, Other)
  Sender: FDA-Public Use
  Company Number: CH-PFIZER INC-2011028809

PATIENT
  Age: 60 Year
  Sex: Female

DRUGS (12)
  1. NEXIUM [Concomitant]
     Dosage: 40 MG, 1X/DAY
  2. ASPIRIN [Concomitant]
     Dosage: 100 MG, 1X/DAY
  3. FOLIC ACID [Concomitant]
     Dosage: 5 MG, 1X/DAY
  4. LEPONEX ^NOVARTIS^ [Interacting]
     Indication: SCHIZOPHRENIA, PARANOID TYPE
     Dosage: 12.5 MG, 1X/DAY
     Route: 048
     Dates: start: 20101123, end: 20101123
  5. ARIXTRA [Concomitant]
     Dosage: 2.5 MG, 1X/DAY
  6. REDOXON [Concomitant]
     Dosage: 1 G, 2X/DAY
  7. RIVOTRIL [Concomitant]
     Dosage: 0.25 MG, 1X/DAY
  8. DAFALGAN [Concomitant]
     Dosage: 1 G, AS NEEDED
  9. TENORMIN [Interacting]
     Indication: TACHYCARDIA
     Dosage: 25 MG, AS NEEDED
     Route: 048
     Dates: start: 20100501, end: 20101123
  10. LYRICA [Suspect]
     Indication: POLYNEUROPATHY
     Dosage: 150 MG, 2X/DAY
     Route: 048
     Dates: start: 20100601, end: 20101205
  11. RISPERDAL [Interacting]
     Dosage: 3 MG, 1X/DAY
     Route: 048
     Dates: start: 20100601
  12. BELOC ZOK [Concomitant]
     Dosage: 75 MG, 1X/DAY

REACTIONS (2)
  - DRUG INTERACTION [None]
  - HYPOTENSION [None]
